FAERS Safety Report 5339130-9 (Version None)
Quarter: 2007Q2

REPORT INFORMATION
  Report Type: 
  Country: None (occurrence: None)
  Receive Date: 20070524
  Receipt Date: 20070510
  Transmission Date: 20071010
  Serious: Yes (Hospitalization)
  Sender: FDA-Public Use
  Company Number: DSM-2007-00168

PATIENT
  Age: 77 Year
  Sex: Female
  Weight: 56 kg

DRUGS (6)
  1. OLMESARTAN MEDOXOMIL [Suspect]
     Indication: HYPERTENSION
     Dosage: (DOSAGE FORMS, 1 IN 1 D), ORAL
     Route: 048
     Dates: end: 20070220
  2. EUPRESSYL (URAPIDIL) [Concomitant]
  3. EFFEXOR [Concomitant]
  4. HEXAQUINE (THIAMINE HYDROCHLORIDE, QUININE BENZOATE, MELALEUCA VIRIDIF [Concomitant]
  5. LEXOMIL (BROMAZEPAM) [Concomitant]
  6. PRAVASTATIN [Concomitant]

REACTIONS (1)
  - ORTHOSTATIC HYPOTENSION [None]
